FAERS Safety Report 6491268-9 (Version None)
Quarter: 2009Q4

REPORT INFORMATION
  Report Type: 
  Country: None (occurrence: None)
  Receive Date: 20091211
  Receipt Date: 20091203
  Transmission Date: 20100525
  Serious: Yes (Other)
  Sender: FDA-Public Use
  Company Number: PHHY2009BR53483

PATIENT
  Sex: Male

DRUGS (2)
  1. DIOVAN AMLO FIX [Suspect]
     Indication: HYPERTENSION
     Dosage: 1 TABLET (80/5 MG) DAILY
     Route: 048
  2. DIOVAN AMLO FIX [Suspect]
     Dosage: 320/10 MG
     Route: 048
     Dates: start: 20091204

REACTIONS (2)
  - HYPERTENSION [None]
  - MALAISE [None]
